FAERS Safety Report 10892279 (Version 5)
Quarter: 2017Q1

REPORT INFORMATION
  Report Type: Spontaneous
  Country: US (occurrence: US)
  Receive Date: 20150306
  Receipt Date: 20170307
  Transmission Date: 20170428
  Serious: Yes (Hospitalization, Other)
  Sender: FDA-Public Use
  Company Number: US-GLAXOSMITHKLINE-US2015GSK020573

PATIENT
  Age: 81 Year
  Sex: Female

DRUGS (12)
  1. ADVAIR DISKUS [Suspect]
     Active Substance: FLUTICASONE PROPIONATE\SALMETEROL XINAFOATE
     Indication: ASTHMA
     Dosage: 1 PUFF(S), BID
     Route: 055
     Dates: start: 2005, end: 20150210
  2. LOSARTAN. [Concomitant]
     Active Substance: LOSARTAN
  3. FEXOFENADINE [Concomitant]
     Active Substance: FEXOFENADINE\FEXOFENADINE HYDROCHLORIDE
  4. MAGNESIUM [Concomitant]
     Active Substance: MAGNESIUM
  5. PREDNISONE. [Concomitant]
     Active Substance: PREDNISONE
  6. ADVAIR DISKUS [Suspect]
     Active Substance: FLUTICASONE PROPIONATE\SALMETEROL XINAFOATE
     Indication: CHRONIC OBSTRUCTIVE PULMONARY DISEASE
     Dosage: 1 PUFF(S), QD
  7. ADVAIR HFA [Suspect]
     Active Substance: FLUTICASONE PROPIONATE\SALMETEROL XINAFOATE
  8. BREO ELLIPTA [Concomitant]
     Active Substance: FLUTICASONE FUROATE\VILANTEROL TRIFENATATE
  9. L-THYROXINE [Concomitant]
     Active Substance: LEVOTHYROXINE
  10. LORAZEPAM. [Concomitant]
     Active Substance: LORAZEPAM
  11. METFORMIN [Concomitant]
     Active Substance: METFORMIN HYDROCHLORIDE
  12. PANTOPRAZOLE [Concomitant]
     Active Substance: PANTOPRAZOLE SODIUM

REACTIONS (11)
  - Hip fracture [Unknown]
  - Fall [Unknown]
  - Heart rate increased [Recovered/Resolved]
  - Headache [Recovering/Resolving]
  - Palpitations [Recovered/Resolved]
  - Constipation [Recovering/Resolving]
  - Nervousness [Recovering/Resolving]
  - Drug dose omission [Unknown]
  - Pulmonary mass [Unknown]
  - Intentional product misuse [Unknown]
  - Influenza [Not Recovered/Not Resolved]

NARRATIVE: CASE EVENT DATE: 201411
